FAERS Safety Report 18088735 (Version 3)
Quarter: 2020Q3

REPORT INFORMATION
  Report Type: Report from Study
  Country: ES (occurrence: ES)
  Receive Date: 20200729
  Receipt Date: 20200805
  Transmission Date: 20201103
  Serious: Yes (Death, Hospitalization, Other)
  Sender: FDA-Public Use
  Company Number: ES-TAIHO ONCOLOGY  INC-IM-2020-00562

PATIENT
  Age: 86 Year
  Sex: Male
  Weight: 67 kg

DRUGS (13)
  1. BEVACIZUMAB. [Suspect]
     Active Substance: BEVACIZUMAB
     Indication: ADENOCARCINOMA OF COLON
     Dosage: 335 MG (5 MG/KG), ON DAYS 1 AND 15 OF EACH 28?DAY CYCLE
     Route: 042
     Dates: start: 20200717, end: 20200717
  2. METAMIZOL [Concomitant]
     Active Substance: METAMIZOLE SODIUM
     Indication: BONE PAIN
     Dosage: 2 G, TID
     Route: 051
     Dates: start: 20200526, end: 20200726
  3. PARACETAMOL [Concomitant]
     Active Substance: ACETAMINOPHEN
     Indication: BONE PAIN
     Dosage: 1 G, TID
     Route: 051
     Dates: start: 20200526, end: 20200726
  4. AMOXICILLIN. [Concomitant]
     Active Substance: AMOXICILLIN
     Indication: INFECTION PROPHYLAXIS
     Dosage: 1 G, TID
     Route: 051
     Dates: start: 20200721, end: 20200726
  5. OMEPRAZOL [Concomitant]
     Active Substance: OMEPRAZOLE
     Dosage: 40 MG, BID
     Route: 051
     Dates: start: 20200724, end: 20200726
  6. AZITROMICINA [Concomitant]
     Active Substance: AZITHROMYCIN DIHYDRATE
     Indication: INFECTION PROPHYLAXIS
     Dosage: 250 MG, QD
     Route: 051
     Dates: start: 20200723, end: 20200724
  7. GRANISETRON [Concomitant]
     Active Substance: GRANISETRON
     Indication: PROPHYLAXIS OF NAUSEA AND VOMITING
     Dosage: 1 MG, ON REQUEST
     Route: 051
     Dates: start: 20200721, end: 20200726
  8. LORAZEPAM. [Concomitant]
     Active Substance: LORAZEPAM
     Indication: INSOMNIA
     Dosage: 1 MG, QD
     Route: 048
     Dates: start: 20200726, end: 20200726
  9. LOSARTAN. [Concomitant]
     Active Substance: LOSARTAN
     Indication: HYPERTENSION
     Dosage: 50 MG, ON REQUEST
     Route: 048
     Dates: start: 20200721, end: 20200723
  10. LONSURF [Suspect]
     Active Substance: TIPIRACIL HYDROCHLORIDE\TRIFLURIDINE
     Indication: ADENOCARCINOMA OF COLON
     Dosage: 60 MG (35 MG/M2) BID, ON DAYS 1?5 AND 8?12 OF EACH 28?DAY CYCLE
     Route: 048
     Dates: start: 20200717, end: 20200720
  11. AMLODIPINE [Concomitant]
     Active Substance: AMLODIPINE BESYLATE
     Indication: HYPERTENSION
     Dosage: 5 MG, ON REQUEST
     Route: 048
     Dates: start: 20170801, end: 20200723
  12. OMEPRAZOL [Concomitant]
     Active Substance: OMEPRAZOLE
     Indication: PROPHYLAXIS AGAINST GASTROINTESTINAL ULCER
     Dosage: 40 MG, QD
     Route: 051
     Dates: start: 20200721, end: 20200723
  13. CLAVULANIC ACID [Concomitant]
     Active Substance: CLAVULANIC ACID
     Indication: INFECTION PROPHYLAXIS
     Dosage: 200 MG, TID
     Route: 051
     Dates: start: 20200721, end: 20200726

REACTIONS (4)
  - Dieulafoy^s vascular malformation [Fatal]
  - Gastric haemorrhage [Fatal]
  - Epistaxis [Not Recovered/Not Resolved]
  - Anaemia [Not Recovered/Not Resolved]

NARRATIVE: CASE EVENT DATE: 20200720
